FAERS Safety Report 7202788 (Version 4)
Quarter: 2013Q2

REPORT INFORMATION
  Report Type: Spontaneous
  Country: JP (occurrence: JP)
  Receive Date: 20091207
  Receipt Date: 20130418
  Transmission Date: 20140414
  Serious: Yes (Hospitalization, Other)
  Sender: FDA-Public Use
  Company Number: PHBS2004JP16466

PATIENT
  Age: 44 Year
  Sex: Male

DRUGS (6)
  1. CARBAMAZEPINE [Suspect]
     Route: 048
     Dates: start: 20040616, end: 20040718
  2. CONTOMIN [Concomitant]
     Route: 048
     Dates: end: 20040718
  3. PAXIL [Concomitant]
     Route: 048
     Dates: start: 20020820, end: 20040718
  4. DEPAS [Concomitant]
     Route: 048
     Dates: start: 20020820, end: 20040718
  5. LANDSEN [Concomitant]
     Route: 048
     Dates: start: 20020820, end: 20040718
  6. SOLANAX [Concomitant]
     Route: 048
     Dates: start: 20020820, end: 20040718

REACTIONS (28)
  - Drug reaction with eosinophilia and systemic symptoms [Recovered/Resolved]
  - Generalised erythema [Recovered/Resolved]
  - Rash generalised [Recovered/Resolved]
  - Face oedema [Recovered/Resolved]
  - Pyrexia [Recovered/Resolved]
  - Leukocytosis [Recovered/Resolved]
  - Lymphocyte morphology abnormal [Recovered/Resolved]
  - Eosinophilia [Recovered/Resolved]
  - Lymphadenopathy [Recovered/Resolved]
  - Oral papule [Recovered/Resolved]
  - Localised oedema [Recovered/Resolved]
  - Scab [Recovered/Resolved]
  - Rash [Recovered/Resolved]
  - Pruritus [Unknown]
  - Malaise [Recovered/Resolved]
  - Papule [Recovered/Resolved]
  - Laryngeal oedema [Recovered/Resolved]
  - Oral mucosal erythema [Recovered/Resolved]
  - Ear canal erythema [Recovered/Resolved]
  - Rash maculo-papular [Recovering/Resolving]
  - Alanine aminotransferase increased [Recovered/Resolved]
  - Hepatitis [Recovered/Resolved]
  - Hepatic function abnormal [Recovered/Resolved]
  - Dyspnoea [Recovered/Resolved]
  - Blood immunoglobulin M decreased [Recovered/Resolved]
  - Blood immunoglobulin G decreased [Recovered/Resolved]
  - Lymphocyte stimulation test positive [Unknown]
  - Human herpesvirus 6 infection [Unknown]
